FAERS Safety Report 9215262 (Version 1)
Quarter: 2013Q2

REPORT INFORMATION
  Report Type: Spontaneous
  Country: BR (occurrence: BR)
  Receive Date: 20130405
  Receipt Date: 20130405
  Transmission Date: 20140414
  Serious: Yes (Hospitalization, Other)
  Sender: FDA-Public Use
  Company Number: BR-ASTRAZENECA-2013SE21201

PATIENT
  Age: 62 Year
  Sex: Female
  Weight: 62.2 kg

DRUGS (5)
  1. NEXIUM [Suspect]
     Indication: GASTROOESOPHAGEAL REFLUX DISEASE
     Route: 048
     Dates: start: 2011
  2. NEXIUM [Suspect]
     Indication: GASTROOESOPHAGEAL REFLUX DISEASE
     Dosage: DAILY
     Route: 048
     Dates: start: 201208
  3. PRESSAT [Concomitant]
     Indication: HYPERTENSION
     Dosage: DAILY
  4. ARADOIS H [Concomitant]
     Indication: HYPERTENSION
     Dosage: DAILY
  5. SINVASCOR [Concomitant]
     Indication: BLOOD CHOLESTEROL INCREASED
     Dosage: DAILY

REACTIONS (1)
  - Breast mass [Unknown]
